FAERS Safety Report 8624716-6 (Version None)
Quarter: 2012Q3

REPORT INFORMATION
  Report Type: 
  Country: None (occurrence: None)
  Receive Date: 20120810
  Receipt Date: 20120727
  Transmission Date: 20120928
  Serious: Yes (Hospitalization, Other)
  Sender: FDA-Public Use
  Company Number: AUR-APL-2012-03176

PATIENT
  Age: 48 Year
  Sex: Female

DRUGS (2)
  1. DALTEPARIN SODIUM [Concomitant]
  2. PIPERACILLIN/TAZOBACTAM [Suspect]
     Indication: PYREXIA
     Dosage: 13.5 GM (4.5 GM, 3 IN 1 D)

REACTIONS (2)
  - THROMBOCYTOPENIA [None]
  - PETECHIAE [None]
